FAERS Safety Report 9311896 (Version 1)
Quarter: 2013Q2

REPORT INFORMATION
  Report Type: Report from Study
  Country: CA (occurrence: CA)
  Receive Date: 20130528
  Receipt Date: 20130528
  Transmission Date: 20140414
  Serious: Yes (Hospitalization)
  Sender: FDA-Public Use
  Company Number: CA-JNJFOC-20130515892

PATIENT
  Age: 57 Year
  Sex: Male
  Weight: 88 kg

DRUGS (4)
  1. REMICADE [Suspect]
     Indication: CROHN^S DISEASE
     Route: 042
     Dates: start: 201003
  2. VITAMIN D [Concomitant]
     Route: 065
  3. CALCIUM [Concomitant]
     Route: 065
  4. MULTIVITAMINS [Concomitant]
     Route: 065

REACTIONS (1)
  - Appendicitis [Recovered/Resolved]
